FAERS Safety Report 15550091 (Version 1)
Quarter: 2018Q4

REPORT INFORMATION
  Report Type: Spontaneous
  Country: US (occurrence: US)
  Receive Date: 20181019
  Receipt Date: 20181019
  Transmission Date: 20190205
  Serious: No
  Sender: FDA-Public Use
  Company Number: None

PATIENT
  Age: 49 Year
  Sex: Male

DRUGS (2)
  1. TREMFYA [Suspect]
     Active Substance: GUSELKUMAB
     Indication: MYOCARDITIS
     Dates: start: 201801
  2. TREMFYA [Suspect]
     Active Substance: GUSELKUMAB
     Indication: MYOCARDITIS INFECTIOUS
     Dates: start: 201801

REACTIONS (3)
  - Chest pain [None]
  - Arthritis [None]
  - Sinus congestion [None]

NARRATIVE: CASE EVENT DATE: 20181018
